FAERS Safety Report 5107325-5 (Version None)
Quarter: 2006Q3

REPORT INFORMATION
  Report Type: 
  Country: None (occurrence: None)
  Receive Date: 20060914
  Receipt Date: 20060901
  Transmission Date: 20061208
  Serious: Yes (Hospitalization, Other)
  Sender: FDA-Public Use
  Company Number: 2006100302

PATIENT
  Age: 46 Year
  Sex: Female
  Weight: 44.4525 kg

DRUGS (2)
  1. BEXTRA [Suspect]
     Indication: MUSCLE SPASMS
     Dosage: 20 MG (20 MG, 1 IN 1 D),
     Dates: start: 20020101, end: 20050101
  2. BEXTRA [Suspect]
     Indication: NECK PAIN
     Dosage: 20 MG (20 MG, 1 IN 1 D),
     Dates: start: 20020101, end: 20050101

REACTIONS (7)
  - BLOOD CHOLESTEROL INCREASED [None]
  - CARDIOVASCULAR DISORDER [None]
  - CEREBROVASCULAR DISORDER [None]
  - HYPERTENSION [None]
  - INJURY [None]
  - MYOCARDIAL INFARCTION [None]
  - RENAL DISORDER [None]
